FAERS Safety Report 6649827-6 (Version None)
Quarter: 2010Q1

REPORT INFORMATION
  Report Type: 
  Country: None (occurrence: None)
  Receive Date: 20100325
  Receipt Date: 20100310
  Transmission Date: 20100710
  Serious: Yes (Other)
  Sender: FDA-Public Use
  Company Number: GB-MYLANLABS-2010S1004094

PATIENT
  Age: 42 Year
  Sex: Female
  Weight: 62 kg

DRUGS (5)
  1. DOXAZOSIN [Suspect]
     Indication: PAIN
  2. DOXAZOSIN [Suspect]
     Indication: VASOSPASM
  3. DOXAZOSIN [Suspect]
  4. DOXAZOSIN [Suspect]
  5. NIFEDIPINE [Concomitant]
     Indication: VASOSPASM

REACTIONS (2)
  - ABDOMINAL PAIN [None]
  - RECTAL HAEMORRHAGE [None]
